FAERS Safety Report 5353119-5 (Version None)
Quarter: 2007Q2

REPORT INFORMATION
  Report Type: 
  Country: None (occurrence: None)
  Receive Date: 20070611
  Receipt Date: 20070531
  Transmission Date: 20071010
  Serious: Yes (Other)
  Sender: FDA-Public Use
  Company Number: US-PFIZER INC-2007045765

PATIENT
  Sex: Female
  Weight: 59.1 kg

DRUGS (2)
  1. CHANTIX [Suspect]
     Indication: EX-SMOKER
  2. VITAMIN CAP [Concomitant]

REACTIONS (1)
  - LOSS OF CONSCIOUSNESS [None]
